FAERS Safety Report 9232250 (Version 2)
Quarter: 2013Q2

REPORT INFORMATION
  Report Type: Report from Study
  Country: US (occurrence: US)
  Receive Date: 20130415
  Receipt Date: 20130507
  Transmission Date: 20140414
  Serious: Yes (Hospitalization, Disabling)
  Sender: FDA-Public Use
  Company Number: US-US-EMD SERONO, INC.-7204514

PATIENT
  Age: 55 Year
  Sex: Female

DRUGS (5)
  1. REBIF [Suspect]
     Indication: RELAPSING-REMITTING MULTIPLE SCLEROSIS
     Route: 058
     Dates: start: 20101223
  2. ASPIRIN                            /00002701/ [Concomitant]
     Indication: PRODUCT USED FOR UNKNOWN INDICATION
  3. CLONAZEPAM [Concomitant]
     Indication: MUSCLE SPASMS
     Route: 048
  4. LYRICA [Concomitant]
     Indication: MUSCLE SPASMS
  5. LYRICA [Concomitant]
     Indication: PAIN

REACTIONS (1)
  - Cerebrovascular accident [Recovered/Resolved with Sequelae]
